FAERS Safety Report 20089841 (Version 1)
Quarter: 2021Q4

REPORT INFORMATION
  Report Type: Report from Study
  Country: EG (occurrence: EG)
  Receive Date: 20211119
  Receipt Date: 20211119
  Transmission Date: 20220303
  Serious: Yes (Hospitalization, Other)
  Sender: FDA-Public Use
  Company Number: EG-NOVARTISPH-NVSC2021EG258012

PATIENT
  Age: 43 Year
  Sex: Male

DRUGS (11)
  1. ENTRESTO [Suspect]
     Active Substance: SACUBITRIL\VALSARTAN
     Indication: Cardiac failure
     Dosage: 0.5 DF, BID (100 MG)
     Route: 048
     Dates: start: 20210517, end: 20210717
  2. ENTRESTO [Suspect]
     Active Substance: SACUBITRIL\VALSARTAN
     Dosage: (100MG IN THE MORNING AND 50 MG ONE TABLET AT NIGHT.)
     Route: 065
  3. ENTRESTO [Suspect]
     Active Substance: SACUBITRIL\VALSARTAN
     Dosage: (50MG IN THE MORNING AND ENTRESTO 100MG ONE TABLET AT NIGHT)
     Route: 065
     Dates: start: 20210717, end: 20210917
  4. ENTRESTO [Suspect]
     Active Substance: SACUBITRIL\VALSARTAN
     Dosage: 100 MG, BID
     Route: 065
     Dates: start: 20210917, end: 20211009
  5. ENTRESTO [Suspect]
     Active Substance: SACUBITRIL\VALSARTAN
     Dosage: 0.5 DF, BID (100 MG)
     Route: 065
     Dates: start: 20211009
  6. TORSEMIDE [Concomitant]
     Active Substance: TORSEMIDE
     Indication: Polyuria
     Dosage: 0.5 DF, QD (HALF TABLET ONCE DAILY)
     Route: 048
     Dates: start: 20210517, end: 20210909
  7. MEPERIDINE [Concomitant]
     Active Substance: MEPERIDINE
     Indication: Polyuria
     Dosage: 1 DF, BID
     Route: 048
     Dates: start: 20210517, end: 20210909
  8. BISOPROLOL FUMARATE [Concomitant]
     Active Substance: BISOPROLOL FUMARATE
     Indication: Blood pressure measurement
     Dosage: 1 DF, BID
     Route: 048
     Dates: start: 20210517
  9. WARFARIN SODIUM [Concomitant]
     Active Substance: WARFARIN SODIUM
     Indication: Anticoagulation drug level above therapeutic
     Dosage: 1 DF, QD
     Route: 048
     Dates: start: 20210517
  10. DAPAGLIFLOZIN [Concomitant]
     Active Substance: DAPAGLIFLOZIN
     Indication: Cardiac failure
     Dosage: 1 DF, QD
     Route: 048
     Dates: start: 20210517
  11. NEXIUM [Concomitant]
     Active Substance: ESOMEPRAZOLE MAGNESIUM
     Indication: Abdominal pain upper
     Dosage: 1 DF, QD
     Route: 048
     Dates: start: 20210517

REACTIONS (9)
  - Coma [Recovered/Resolved]
  - Embolism [Recovered/Resolved]
  - Intracardiac thrombus [Recovered/Resolved]
  - Cerebrovascular accident [Recovered/Resolved]
  - Hypotension [Recovered/Resolved]
  - Renal impairment [Recovered/Resolved]
  - Dizziness [Recovered/Resolved]
  - Mood altered [Recovered/Resolved]
  - Wrong technique in product usage process [Recovered/Resolved]

NARRATIVE: CASE EVENT DATE: 20210517
